FAERS Safety Report 5759416-3 (Version None)
Quarter: 2008Q2

REPORT INFORMATION
  Report Type: 
  Country: None (occurrence: None)
  Receive Date: 20080507
  Receipt Date: 20071115
  Transmission Date: 20081010
  Serious: Yes (Other)
  Sender: FDA-Public Use
  Company Number: 230346J07USA

PATIENT
  Age: 45 Year
  Sex: Male

DRUGS (6)
  1. REBIF [Suspect]
     Indication: MULTIPLE SCLEROSIS
     Dosage: 44 MCG, 3 IN 1 WEEKS, SUBCUTANEOUS
     Route: 058
     Dates: start: 20070117, end: 20071025
  2. VYTORIN [Suspect]
     Dates: start: 20060101, end: 20070101
  3. VYTORIN [Suspect]
     Dates: start: 20070101
  4. CYMBALTA [Suspect]
     Dates: start: 20040101, end: 20070101
  5. CYMBALTA [Suspect]
     Dates: start: 20070101
  6. STATINS (ALL OTHER THERAPEUTIC PRODUCTS) [Concomitant]

REACTIONS (3)
  - HEPATIC ENZYME INCREASED [None]
  - INJECTION SITE ERYTHEMA [None]
  - INJECTION SITE REACTION [None]
